FAERS Safety Report 7825615-X (Version None)
Quarter: 2011Q4

REPORT INFORMATION
  Report Type: 
  Country: None (occurrence: None)
  Receive Date: 20111019
  Receipt Date: 20111017
  Transmission Date: 20120403
  Serious: Yes (Other)
  Sender: FDA-Public Use
  Company Number: US-PFIZER INC-2011249106

PATIENT
  Age: 72 Year
  Sex: Male

DRUGS (1)
  1. IBUPROFEN (ADVIL) [Suspect]
     Indication: BACK PAIN
     Dosage: UNK
     Route: 065

REACTIONS (4)
  - BACTERIAL TEST POSITIVE [None]
  - GASTROINTESTINAL DISORDER [None]
  - ULCER [None]
  - HAEMORRHAGE [None]
